FAERS Safety Report 5793505-2 (Version None)
Quarter: 2008Q2

REPORT INFORMATION
  Report Type: 
  Country: None (occurrence: None)
  Receive Date: 20080627
  Receipt Date: 20080618
  Transmission Date: 20081010
  Serious: Yes (Hospitalization, Other)
  Sender: FDA-Public Use
  Company Number: BE-JNJFOC-20080604701

PATIENT
  Age: 70 Year
  Sex: Female

DRUGS (2)
  1. RISPERDAL [Suspect]
     Indication: AGITATION
     Route: 048
  2. RISPERDAL [Suspect]
     Indication: PSYCHOTIC DISORDER
     Route: 048

REACTIONS (2)
  - CEREBRAL HAEMORRHAGE [None]
  - PULMONARY OEDEMA [None]
